FAERS Safety Report 24994184 (Version 1)
Quarter: 2025Q1

REPORT INFORMATION
  Report Type: Spontaneous
  Country: US (occurrence: US)
  Receive Date: 20250221
  Receipt Date: 20250221
  Transmission Date: 20250409
  Serious: Yes (Other)
  Sender: ALEXION PHARMACEUTICALS
  Company Number: US-AstraZeneca-CH-00808983A

PATIENT

DRUGS (2)
  1. FASENRA [Suspect]
     Active Substance: BENRALIZUMAB
     Route: 065
  2. PREDNISONE [Concomitant]
     Active Substance: PREDNISONE

REACTIONS (9)
  - Asthma [Unknown]
  - Pulmonary oedema [Unknown]
  - Illness [Unknown]
  - Bronchospasm [Unknown]
  - Feeling abnormal [Unknown]
  - Cough [Unknown]
  - Asthma [Unknown]
  - Dyspnoea [Unknown]
  - Insurance issue [Recovered/Resolved]
